FAERS Safety Report 6814359-9 (Version None)
Quarter: 2010Q3

REPORT INFORMATION
  Report Type: 
  Country: None (occurrence: None)
  Receive Date: 20100702
  Receipt Date: 20100628
  Transmission Date: 20110219
  Serious: Yes (Hospitalization)
  Sender: FDA-Public Use
  Company Number: US-KINGPHARMUSA00001-K201000819

PATIENT
  Age: 47 Year
  Sex: Female

DRUGS (6)
  1. SEPTRA [Suspect]
     Indication: PROPHYLAXIS
  2. MYCOPHENOLATE MOFETIL [Concomitant]
  3. TACROLIMUS [Concomitant]
  4. PREDNISONE [Concomitant]
     Dosage: UNK
  5. LEVOFLOXACIN [Concomitant]
  6. PIPERACILLIN SODIUM W/TAZOBACTAM [Concomitant]

REACTIONS (5)
  - ACUTE RESPIRATORY FAILURE [None]
  - DRUG DOSE OMISSION [None]
  - HYPOTENSION [None]
  - OXYGEN SATURATION DECREASED [None]
  - PNEUMOCYSTIS JIROVECI PNEUMONIA [None]
